FAERS Safety Report 25483621 (Version 1)
Quarter: 2025Q2

REPORT INFORMATION
  Report Type: Spontaneous
  Country: GB (occurrence: GB)
  Receive Date: 20250626
  Receipt Date: 20250626
  Transmission Date: 20250717
  Serious: Yes (Other)
  Sender: GALPHARM INTERNATIONAL
  Company Number: None

PATIENT
  Age: 54 Year
  Sex: Male
  Weight: 72 kg

DRUGS (10)
  1. IBUPROFEN [Suspect]
     Active Substance: IBUPROFEN
     Indication: Product used for unknown indication
     Route: 065
  2. AMOXICILLIN [Concomitant]
     Active Substance: AMOXICILLIN
     Indication: Ill-defined disorder
     Route: 065
     Dates: start: 20250326, end: 20250331
  3. AQUACEL AG EXTRA [Concomitant]
     Indication: Ill-defined disorder
     Route: 065
     Dates: start: 20250527, end: 20250528
  4. PRONTOSAN W [Concomitant]
     Indication: Ill-defined disorder
     Route: 065
     Dates: start: 20241004
  5. URGOTUL [Concomitant]
     Indication: Ill-defined disorder
     Route: 065
     Dates: start: 20250411, end: 20250416
  6. FLUCLOXACILLIN [Concomitant]
     Active Substance: FLUCLOXACILLIN
     Indication: Ill-defined disorder
     Route: 065
     Dates: start: 20250417, end: 20250424
  7. CLARITHROMYCIN [Concomitant]
     Active Substance: CLARITHROMYCIN
     Indication: Ill-defined disorder
     Route: 065
     Dates: start: 20250621
  8. METHADONE [Concomitant]
     Active Substance: METHADONE HYDROCHLORIDE
     Indication: Ill-defined disorder
     Route: 065
     Dates: start: 20250604
  9. PREGABALIN [Concomitant]
     Active Substance: PREGABALIN
     Indication: Ill-defined disorder
     Route: 065
     Dates: start: 20250115
  10. NICOTINELL [Concomitant]
     Active Substance: NICOTINE
     Indication: Ill-defined disorder
     Route: 065
     Dates: start: 20250613, end: 20250620

REACTIONS (1)
  - Anaphylactic reaction [Recovered/Resolved]
